FAERS Safety Report 8882709 (Version 1)
Quarter: 2012Q4

REPORT INFORMATION
  Report Type: 
  Country: PK (occurrence: PK)
  Receive Date: 20121102
  Receipt Date: 20121102
  Transmission Date: 20130627
  Serious: Yes (Death)
  Sender: FDA-Public Use
  Company Number: PHHY2012PK098872

PATIENT
  Age: 60 Year
  Sex: Female

DRUGS (4)
  1. ACLASTA [Suspect]
     Indication: OSTEOPOROSIS
     Dosage: Once a year
     Route: 042
  2. ACLASTA [Suspect]
     Dosage: Once a year
     Route: 042
  3. ACLASTA [Suspect]
     Dosage: Once a year
     Route: 042
     Dates: start: 20111111
  4. CALCIUM [Concomitant]
     Indication: OSTEOPOROSIS
     Dosage: Once daily
     Route: 048
     Dates: start: 201111, end: 201207

REACTIONS (1)
  - Death [Fatal]
